FAERS Safety Report 13387275 (Version 1)
Quarter: 2017Q1

REPORT INFORMATION
  Report Type: Spontaneous
  Country: US (occurrence: US)
  Receive Date: 20170330
  Receipt Date: 20170330
  Transmission Date: 20170429
  Serious: Yes (Other)
  Sender: FDA-Public Use
  Company Number: US-PFIZER INC-2017131462

PATIENT
  Age: 71 Year
  Sex: Female

DRUGS (1)
  1. DAPTOMYCIN. [Suspect]
     Active Substance: DAPTOMYCIN
     Indication: ENTEROCOCCAL INFECTION
     Dosage: 300 MG, 1X/DAY (Q24H INT)
     Route: 042
     Dates: start: 201703

REACTIONS (2)
  - Fungal test positive [Unknown]
  - Product use issue [Unknown]

NARRATIVE: CASE EVENT DATE: 201703
